FAERS Safety Report 13702960 (Version 1)
Quarter: 2017Q2

REPORT INFORMATION
  Report Type: Spontaneous
  Country: GR (occurrence: GR)
  Receive Date: 20170629
  Receipt Date: 20170629
  Transmission Date: 20170830
  Serious: Yes (Other)
  Sender: FDA-Public Use
  Company Number: GR-MYLANLABS-2017M1038597

PATIENT

DRUGS (5)
  1. IBRUTINIB [Suspect]
     Active Substance: IBRUTINIB
     Indication: CHRONIC LYMPHOCYTIC LEUKAEMIA
     Dosage: 420MG/DAY
     Route: 065
     Dates: start: 201609
  2. RITUXIMAB [Concomitant]
     Active Substance: RITUXIMAB
     Indication: CHRONIC LYMPHOCYTIC LEUKAEMIA
     Dosage: TOTAL 6 CYCLES WERE ADMINISTERED
     Route: 065
     Dates: start: 2014
  3. ACICLOVIR [Concomitant]
     Active Substance: ACYCLOVIR
     Indication: HERPES SIMPLEX
     Route: 065
  4. FLUDARABINE [Suspect]
     Active Substance: FLUDARABINE PHOSPHATE
     Indication: CHRONIC LYMPHOCYTIC LEUKAEMIA
     Dosage: TOTAL 6 CYCLES WERE ADMINISTERED
     Route: 065
     Dates: start: 2014
  5. CYCLOPHOSPHAMIDE. [Concomitant]
     Active Substance: CYCLOPHOSPHAMIDE
     Indication: CHRONIC LYMPHOCYTIC LEUKAEMIA
     Dosage: TOTAL 6 CYCLES WERE ADMINISTERED
     Route: 065
     Dates: start: 2014

REACTIONS (2)
  - Chronic lymphocytic leukaemia transformation [Unknown]
  - Hodgkin^s disease [Unknown]
